FAERS Safety Report 5816813-5 (Version None)
Quarter: 2008Q3

REPORT INFORMATION
  Report Type: 
  Country: None (occurrence: None)
  Receive Date: 20080721
  Receipt Date: 20080711
  Transmission Date: 20090109
  Serious: Yes (Hospitalization, Other)
  Sender: FDA-Public Use
  Company Number: FR-ELI_LILLY_AND_COMPANY-FR200706002042

PATIENT
  Age: 58 Year
  Sex: Female
  Weight: 47 kg

DRUGS (4)
  1. OPTRUMA [Suspect]
     Indication: OSTEOPOROSIS
     Dosage: UNK, DAILY (1/D)
     Route: 048
     Dates: start: 20060301
  2. LEXOMIL [Concomitant]
     Indication: ANXIETY
     Dosage: 1 D/F, DAILY (1/D)
     Route: 065
  3. HEXAQUINE [Concomitant]
     Indication: MUSCLE SPASMS
     Dosage: 2 D/F, DAILY (1/D)
     Route: 065
  4. MOVICOL [Concomitant]
     Indication: CONSTIPATION
     Dosage: 2 D/F, DAILY (1/D)
     Route: 065
     Dates: start: 20060401

REACTIONS (1)
  - UTERINE CANCER [None]
